FAERS Safety Report 11827589 (Version 1)
Quarter: 2015Q4

REPORT INFORMATION
  Report Type: Spontaneous
  Country: US (occurrence: US)
  Receive Date: 20151211
  Receipt Date: 20151211
  Transmission Date: 20160305
  Serious: No
  Sender: FDA-Public Use
  Company Number: US-WATSON-2015-24527

PATIENT
  Age: 42 Year
  Sex: Female

DRUGS (2)
  1. LILETTA [Suspect]
     Active Substance: LEVONORGESTREL
     Indication: MIGRAINE
  2. LILETTA [Suspect]
     Active Substance: LEVONORGESTREL
     Indication: HYPOMENORRHOEA
     Dosage: UNK, UNKNOWN
     Route: 065
     Dates: start: 20150812

REACTIONS (3)
  - Oligomenorrhoea [Not Recovered/Not Resolved]
  - Menstruation irregular [Not Recovered/Not Resolved]
  - Menstrual disorder [Not Recovered/Not Resolved]

NARRATIVE: CASE EVENT DATE: 20150812
